FAERS Safety Report 19836177 (Version 1)
Quarter: 2021Q3

REPORT INFORMATION
  Report Type: Spontaneous
  Country: IT (occurrence: IT)
  Receive Date: 20210916
  Receipt Date: 20210916
  Transmission Date: 20211014
  Serious: Yes (Life-Threatening)
  Sender: FDA-Public Use
  Company Number: IT-AUROBINDO-AUR-APL-2021-029803

PATIENT
  Age: 15 Year
  Sex: Female
  Weight: 59 kg

DRUGS (15)
  1. AVACOPAN. [Suspect]
     Active Substance: AVACOPAN
     Dosage: UNK
     Route: 065
     Dates: start: 20210624
  2. KAYEXALATE [Concomitant]
     Active Substance: SODIUM POLYSTYRENE SULFONATE
     Indication: HYPERKALAEMIA
     Dosage: 15 GRAM
     Route: 048
  3. MYCOPHENOLATE MOFETIL. [Concomitant]
     Active Substance: MYCOPHENOLATE MOFETIL
     Indication: C3 GLOMERULOPATHY
     Dosage: UNK
     Route: 065
     Dates: start: 201609
  4. AMOXICILLIN. [Suspect]
     Active Substance: AMOXICILLIN
     Dosage: UNK
     Route: 065
     Dates: start: 20210608, end: 20210615
  5. AVACOPAN. [Suspect]
     Active Substance: AVACOPAN
     Indication: MICROSCOPIC POLYANGIITIS
     Dosage: 30 MILLIGRAM, ONCE A DAY
     Route: 065
     Dates: start: 20191218, end: 20210428
  6. CYCLOSPORIN A [Suspect]
     Active Substance: CYCLOSPORINE
     Indication: C3 GLOMERULOPATHY
     Dosage: 50 MILLIGRAM, ONCE A DAY
     Route: 048
  7. AVACOPAN. [Suspect]
     Active Substance: AVACOPAN
     Indication: GRANULOMATOSIS WITH POLYANGIITIS
     Dosage: 30 MILLIGRAM, ONCE A DAY
     Route: 065
     Dates: start: 20190405, end: 20191002
  8. AVACOPAN. [Suspect]
     Active Substance: AVACOPAN
     Indication: C3 GLOMERULOPATHY
     Dosage: UNK
     Route: 048
     Dates: start: 201809
  9. AVACOPAN. [Suspect]
     Active Substance: AVACOPAN
     Dosage: 30 MILLIGRAM, ONCE A DAY
     Route: 065
     Dates: start: 20210607, end: 20210611
  10. CYCLOSPORIN A [Suspect]
     Active Substance: CYCLOSPORINE
     Indication: NEPHROPATHY
     Dosage: 50 MILLIGRAM, ONCE A DAY
     Route: 065
     Dates: start: 201806
  11. PREDNISOLONE. [Concomitant]
     Active Substance: PREDNISOLONE
     Indication: C3 GLOMERULOPATHY
     Dosage: UNK
     Route: 065
     Dates: start: 201609
  12. FLUTICASONE. [Concomitant]
     Active Substance: FLUTICASONE
     Indication: ASTHMA
     Dosage: UNK
     Dates: start: 201902
  13. AMOXICILLIN. [Suspect]
     Active Substance: AMOXICILLIN
     Indication: PROPHYLAXIS
     Dosage: 250 MILLIGRAM
     Route: 065
     Dates: start: 201809
  14. TRIATEC [Concomitant]
     Indication: C3 GLOMERULOPATHY
     Dosage: 5 MILLIGRAM, ONCE A DAY
     Route: 048
  15. TRIATEC [Concomitant]
     Indication: NEPHROPATHY
     Dosage: 5 MILLIGRAM, ONCE A DAY
     Route: 065
     Dates: start: 201609

REACTIONS (4)
  - Blood creatine phosphokinase increased [Recovered/Resolved]
  - Treatment noncompliance [Unknown]
  - Toxicity to various agents [Recovered/Resolved]
  - Aspartate aminotransferase increased [Recovered/Resolved]

NARRATIVE: CASE EVENT DATE: 20210428
